FAERS Safety Report 9570983 (Version 1)
Quarter: 2013Q4

REPORT INFORMATION
  Report Type: Spontaneous
  Country: US (occurrence: US)
  Receive Date: 20131001
  Receipt Date: 20131001
  Transmission Date: 20140711
  Serious: Yes (Other)
  Sender: FDA-Public Use
  Company Number: US-JNJFOC-20130914229

PATIENT
  Sex: Female
  Weight: 79.83 kg

DRUGS (2)
  1. REMICADE [Suspect]
     Indication: RHEUMATOID ARTHRITIS
     Route: 042
     Dates: start: 201307, end: 201307
  2. REMICADE [Suspect]
     Indication: RHEUMATOID ARTHRITIS
     Route: 042
     Dates: start: 201307, end: 201308

REACTIONS (8)
  - Disorientation [Recovering/Resolving]
  - Arthritis [Unknown]
  - Adverse event [Unknown]
  - Dyspnoea [Recovered/Resolved]
  - Chest pain [Recovering/Resolving]
  - Cough [Recovering/Resolving]
  - Dyspepsia [Recovering/Resolving]
  - Dizziness [Not Recovered/Not Resolved]
